FAERS Safety Report 10087995 (Version 2)
Quarter: 2014Q2

REPORT INFORMATION
  Report Type: Report from Study
  Country: AR (occurrence: AR)
  Receive Date: 20140419
  Receipt Date: 20140507
  Transmission Date: 20141212
  Serious: Yes (Hospitalization)
  Sender: FDA-Public Use
  Company Number: AR-US-EMD SERONO, INC.-7283001

PATIENT
  Sex: Male

DRUGS (2)
  1. REBIF [Suspect]
     Indication: MULTIPLE SCLEROSIS
     Dates: start: 20130124, end: 20140322
  2. REBIF [Suspect]
     Dates: start: 20080407, end: 20130124

REACTIONS (4)
  - Pneumonia [Recovering/Resolving]
  - Dysphagia [Unknown]
  - Aspiration bronchial [Unknown]
  - Functional gastrointestinal disorder [Unknown]
